FAERS Safety Report 7310452-5 (Version None)
Quarter: 2011Q1

REPORT INFORMATION
  Report Type: 
  Country: None (occurrence: None)
  Receive Date: 20110224
  Receipt Date: 20100825
  Transmission Date: 20110831
  Serious: No
  Sender: FDA-Public Use
  Company Number: US-BRISTOL-MYERS SQUIBB COMPANY-15257116

PATIENT
  Age: 67 Year
  Sex: Male

DRUGS (7)
  1. PRAVASTATIN SODIUM [Concomitant]
     Dosage: 2 TABS
  2. LORAZEPAM [Concomitant]
  3. ATENOLOL [Concomitant]
  4. METFORMIN HCL [Suspect]
  5. SERTRALINE HCL [Concomitant]
  6. FORTAMET [Suspect]
  7. PANTOPRAZOLE [Concomitant]

REACTIONS (2)
  - FATIGUE [None]
  - INSOMNIA [None]
